FAERS Safety Report 21311708 (Version 1)
Quarter: 2022Q3

REPORT INFORMATION
  Report Type: Spontaneous
  Country: US (occurrence: None)
  Receive Date: 20220909
  Receipt Date: 20220909
  Transmission Date: 20221027
  Serious: No
  Sender: FDA-Public Use
  Company Number: US-ARIS GLOBAL-202202-0340

PATIENT
  Age: 66 Year
  Sex: Male

DRUGS (3)
  1. OXERVATE [Suspect]
     Active Substance: CENEGERMIN-BKBJ
     Indication: Neurotrophic keratopathy
     Route: 047
     Dates: start: 202202
  2. SYSTANE ULTRA PF [Concomitant]
     Indication: Neurotrophic keratopathy
     Dosage: 0.3%-0.4% RIGHT EYE
     Route: 061
     Dates: start: 202110
  3. DUREZOL [Concomitant]
     Active Substance: DIFLUPREDNATE
     Indication: Diabetic retinal oedema
     Dosage: RIGHT EYE
     Route: 061
     Dates: start: 202110

REACTIONS (1)
  - Drug ineffective [Unknown]

NARRATIVE: CASE EVENT DATE: 20220209
